FAERS Safety Report 11633685 (Version 1)
Quarter: 2015Q4

REPORT INFORMATION
  Report Type: Spontaneous
  Country: DK (occurrence: DK)
  Receive Date: 20151015
  Receipt Date: 20151015
  Transmission Date: 20160304
  Serious: Yes (Life-Threatening, Hospitalization, Disabling, Other)
  Sender: FDA-Public Use
  Company Number: DK-BRISTOL-MYERS SQUIBB COMPANY-BMS-2015-068010

PATIENT
  Age: 77 Year
  Sex: Male

DRUGS (6)
  1. BETMIGA [Concomitant]
     Active Substance: MIRABEGRON
     Indication: PRODUCT USED FOR UNKNOWN INDICATION
     Route: 065
  2. ELIQUIS [Suspect]
     Active Substance: APIXABAN
     Indication: CEREBROVASCULAR ACCIDENT PROPHYLAXIS
     Dosage: 5 MG, BID
     Route: 048
     Dates: end: 20150908
  3. DIGOXIN. [Concomitant]
     Active Substance: DIGOXIN
     Indication: ATRIAL FIBRILLATION
     Route: 065
  4. JERN C [Concomitant]
     Indication: MINERAL SUPPLEMENTATION
     Route: 065
  5. LOSARSTAD [Concomitant]
     Indication: HYPERTENSION
     Route: 065
  6. METOPROLOLSUCCINAT 1 A PHARMA [Concomitant]
     Indication: PRODUCT USED FOR UNKNOWN INDICATION
     Route: 065

REACTIONS (8)
  - Facial paresis [Unknown]
  - Fall [Unknown]
  - Hemiparesis [Not Recovered/Not Resolved]
  - Confusional state [Unknown]
  - Dysphagia [Unknown]
  - Cerebral haemorrhage [Recovering/Resolving]
  - Gait disturbance [Unknown]
  - Pneumonia aspiration [Unknown]

NARRATIVE: CASE EVENT DATE: 201509
